FAERS Safety Report 10521442 (Version 1)
Quarter: 2014Q4

REPORT INFORMATION
  Report Type: Spontaneous
  Country: US (occurrence: None)
  Receive Date: 20141014
  Receipt Date: 20141014
  Transmission Date: 20150528
  Serious: Yes (Hospitalization)
  Sender: FDA-Public Use
  Company Number: None

PATIENT
  Age: 58 Year
  Sex: Female

DRUGS (1)
  1. COPAXONE [Suspect]
     Active Substance: GLATIRAMER ACETATE
     Indication: MULTIPLE SCLEROSIS
     Dosage: 40 MG TIW SQ
     Route: 058
     Dates: start: 20140723

REACTIONS (3)
  - VIIth nerve paralysis [None]
  - Blindness [None]
  - Seizure [None]

NARRATIVE: CASE EVENT DATE: 20140920
